FAERS Safety Report 14647271 (Version 3)
Quarter: 2018Q2

REPORT INFORMATION
  Report Type: Spontaneous
  Country: US (occurrence: US)
  Receive Date: 20180316
  Receipt Date: 20180518
  Transmission Date: 20180711
  Serious: No
  Sender: FDA-Public Use
  Company Number: US-PFIZER INC-2018099692

PATIENT
  Age: 33 Year
  Sex: Male
  Weight: 83.91 kg

DRUGS (1)
  1. GENOTROPIN [Suspect]
     Active Substance: SOMATROPIN
     Indication: INJURY
     Dosage: 2 IU, DAILY
     Dates: start: 20180126

REACTIONS (3)
  - Hyperhidrosis [Recovered/Resolved]
  - Injection site haemorrhage [Recovered/Resolved]
  - Product use in unapproved indication [Unknown]

NARRATIVE: CASE EVENT DATE: 20180126
